FAERS Safety Report 8505102-6 (Version None)
Quarter: 2012Q3

REPORT INFORMATION
  Report Type: 
  Country: None (occurrence: None)
  Receive Date: 20120712
  Receipt Date: 20120705
  Transmission Date: 20120928
  Serious: No
  Sender: FDA-Public Use
  Company Number: PHEH2012US011089

PATIENT
  Sex: Female

DRUGS (1)
  1. ZOMETA [Suspect]
     Route: 042

REACTIONS (1)
  - NO ADVERSE EVENT [None]
